FAERS Safety Report 7095542-7 (Version None)
Quarter: 2010Q4

REPORT INFORMATION
  Report Type: 
  Country: None (occurrence: None)
  Receive Date: 20101103
  Receipt Date: 20101028
  Transmission Date: 20110411
  Serious: Yes (Hospitalization)
  Sender: FDA-Public Use
  Company Number: 2010MA004070

PATIENT
  Sex: Female

DRUGS (5)
  1. METFORMIN HYDROCHLORIDE [Suspect]
     Dosage: 2 GM; QD; PO
     Route: 048
  2. GLICLAZINE [Concomitant]
  3. SIMVASTATIN [Concomitant]
  4. INSULIN GLARGINE [Concomitant]
  5. INSULIN GLULISINE [Concomitant]

REACTIONS (1)
  - METABOLIC ACIDOSIS [None]
